FAERS Safety Report 7877486-3 (Version None)
Quarter: 2011Q4

REPORT INFORMATION
  Report Type: 
  Country: None (occurrence: None)
  Receive Date: 20111031
  Receipt Date: 20111025
  Transmission Date: 20120403
  Serious: Yes (Other)
  Sender: FDA-Public Use
  Company Number: US-PFIZER INC-2011261339

PATIENT
  Sex: Female
  Weight: 82 kg

DRUGS (2)
  1. FOSAMAX [Concomitant]
     Indication: OSTEOARTHRITIS
     Dosage: 70 MG, WEEKLY
  2. AROMASIN [Suspect]
     Indication: BREAST CANCER
     Dosage: 25 MG, DAILY
     Dates: start: 20070801

REACTIONS (2)
  - RHINITIS [None]
  - WEIGHT INCREASED [None]
